FAERS Safety Report 5082558-5 (Version None)
Quarter: 2006Q3

REPORT INFORMATION
  Report Type: 
  Country: None (occurrence: None)
  Receive Date: 20060814
  Receipt Date: 20060801
  Transmission Date: 20061208
  Serious: Yes (Other)
  Sender: FDA-Public Use
  Company Number: 2006-08-0332

PATIENT
  Age: 61 Year
  Sex: Male

DRUGS (11)
  1. PEG-INTRON [Suspect]
     Indication: HEPATITIS C
     Dosage: SUBCUTANEOUS
     Route: 058
     Dates: start: 20060505, end: 20060601
  2. REBETOL [Suspect]
     Indication: HEPATITIS C
     Dosage: ORAL
     Route: 048
     Dates: start: 20060505, end: 20060601
  3. AVANDIA (ROSIGLITAZONE) TABLETS [Concomitant]
  4. FLUOXETINE HYDROCHLORIDE TABLETS [Concomitant]
  5. FUROSEMIDE [Concomitant]
  6. GABAPETIN TABLETS [Concomitant]
  7. LIPITOR (ATROVASTATIN) TABLETS [Concomitant]
  8. LISINOPRIL [Concomitant]
  9. OMEPRAZOLE [Concomitant]
  10. ASPIRIN BABY CHEWABLE TABLETS [Concomitant]
  11. PROMETHAZINE HYDROCHLORIDE TABLETS [Concomitant]

REACTIONS (2)
  - DEMENTIA [None]
  - FEAR [None]
